FAERS Safety Report 24200861 (Version 2)
Quarter: 2024Q4

REPORT INFORMATION
  Report Type: Report from Study
  Country: US (occurrence: US)
  Receive Date: 20240812
  Receipt Date: 20241002
  Transmission Date: 20250115
  Serious: Yes (Other)
  Sender: MYLAN
  Company Number: US-MYLANLABS-2024M1073732

PATIENT
  Age: 37 Year
  Sex: Female
  Weight: 49.9 kg

DRUGS (1)
  1. ISOTRETINOIN [Suspect]
     Active Substance: ISOTRETINOIN
     Indication: Acne
     Dosage: 40 MILLIGRAM, QD
     Route: 065
     Dates: start: 20240803

REACTIONS (1)
  - Maternal exposure during pregnancy [Unknown]

NARRATIVE: CASE EVENT DATE: 20240803
